FAERS Safety Report 5989103-8 (Version None)
Quarter: 2008Q4

REPORT INFORMATION
  Report Type: 
  Country: None (occurrence: None)
  Receive Date: 20081204
  Receipt Date: 20081028
  Transmission Date: 20090506
  Serious: Yes (Hospitalization)
  Sender: FDA-Public Use
  Company Number: 2008-186637-NL

PATIENT
  Age: 26 Year
  Sex: Male

DRUGS (1)
  1. MIRTAZAPINE [Suspect]

REACTIONS (5)
  - AGGRESSION [None]
  - APATHY [None]
  - FATIGUE [None]
  - OVERDOSE [None]
  - TACHYCARDIA [None]
